FAERS Safety Report 5516808-5 (Version None)
Quarter: 2007Q4

REPORT INFORMATION
  Report Type: 
  Country: None (occurrence: None)
  Receive Date: 20071114
  Receipt Date: 20071105
  Transmission Date: 20080405
  Serious: Yes (Death)
  Sender: FDA-Public Use
  Company Number: US-JNJFOC-20070803704

PATIENT
  Sex: Male
  Weight: 87.09 kg

DRUGS (8)
  1. REMICADE [Suspect]
     Route: 042
  2. REMICADE [Suspect]
     Route: 042
  3. REMICADE [Suspect]
     Indication: RHEUMATOID ARTHRITIS
     Route: 042
  4. ZIAC [Concomitant]
     Indication: HYPERTENSION
  5. CYMBALTA [Concomitant]
     Indication: DEPRESSION
  6. METHOTREXATE [Concomitant]
     Indication: RHEUMATOID ARTHRITIS
  7. LISINOPRIL [Concomitant]
     Indication: HYPERTENSION
  8. NAPROXEN [Concomitant]
     Indication: ARTHRITIS

REACTIONS (3)
  - ARRHYTHMIA [None]
  - HYPERTROPHIC CARDIOMYOPATHY [None]
  - JOINT SWELLING [None]
